FAERS Safety Report 12754909 (Version 2)
Quarter: 2018Q3

REPORT INFORMATION
  Report Type: Report from Study
  Country: BR (occurrence: BR)
  Receive Date: 20160916
  Receipt Date: 20180816
  Transmission Date: 20181010
  Serious: Yes (Hospitalization, Other)
  Sender: FDA-Public Use
  Company Number: PHHY2016BR125818

PATIENT
  Sex: Female
  Weight: 44.9 kg

DRUGS (2)
  1. EXJADE [Suspect]
     Active Substance: DEFERASIROX
     Indication: SICKLE CELL ANAEMIA
     Dosage: 3 DF, QD (1500 MG)
     Route: 048
  2. EXJADE [Suspect]
     Active Substance: DEFERASIROX
     Dosage: 2 DF, QD (1000 MG)
     Route: 048

REACTIONS (7)
  - Sickle cell anaemia with crisis [Unknown]
  - Weight decreased [Unknown]
  - Cerebrovascular accident [Unknown]
  - Abdominal pain upper [Recovering/Resolving]
  - Memory impairment [Not Recovered/Not Resolved]
  - Cerebral haemorrhage [Unknown]
  - General physical health deterioration [Unknown]
